FAERS Safety Report 13677616 (Version 1)
Quarter: 2017Q2

REPORT INFORMATION
  Report Type: Spontaneous
  Country: US (occurrence: US)
  Receive Date: 20170622
  Receipt Date: 20170622
  Transmission Date: 20170830
  Serious: No
  Sender: FDA-Public Use
  Company Number: US-TRIS PHARMA, INC-2017TRISPO00110

PATIENT

DRUGS (3)
  1. COUMADIN [Concomitant]
     Active Substance: WARFARIN SODIUM
     Indication: CEREBROVASCULAR ACCIDENT
     Dosage: 2.5 MG, QD (ONCE A DAY)
     Route: 065
     Dates: start: 2014
  2. DIGOXIN. [Concomitant]
     Active Substance: DIGOXIN
     Indication: CEREBROVASCULAR ACCIDENT
     Dosage: UNK, QOD
     Route: 065
     Dates: start: 2014
  3. DEXTROMETHORPHAN POLISTIREX [Suspect]
     Active Substance: DEXTROMETHORPHAN HYDROBROMIDE
     Indication: COUGH
     Dosage: 10 ML, SINGLE
     Route: 065
     Dates: start: 20170209, end: 20170209

REACTIONS (1)
  - Hypersensitivity [Recovering/Resolving]

NARRATIVE: CASE EVENT DATE: 20170210
